FAERS Safety Report 23856438 (Version 1)
Quarter: 2024Q2

REPORT INFORMATION
  Report Type: Spontaneous
  Country: FR (occurrence: FR)
  Receive Date: 20240515
  Receipt Date: 20240515
  Transmission Date: 20240716
  Serious: Yes (Hospitalization, Other)
  Sender: FDA-Public Use
  Company Number: None

PATIENT
  Age: 57 Year
  Sex: Male
  Weight: 87 kg

DRUGS (3)
  1. TAMSULOSIN [Suspect]
     Active Substance: TAMSULOSIN
     Indication: Renal colic
     Dosage: 1 DF, QD
     Route: 048
     Dates: start: 20230826, end: 20230831
  2. KETOPROFEN [Suspect]
     Active Substance: KETOPROFEN
     Indication: Renal colic
     Dosage: 2 DF, QD
     Route: 048
     Dates: start: 20230826, end: 20230831
  3. PHLOROGLUCINOL\1,3,5-TRIMETHOXYBENZENE [Suspect]
     Active Substance: PHLOROGLUCINOL\1,3,5-TRIMETHOXYBENZENE
     Indication: Renal colic
     Dosage: 3 DF, QD
     Route: 048
     Dates: start: 20230826, end: 20230831

REACTIONS (1)
  - Drug reaction with eosinophilia and systemic symptoms [Recovered/Resolved]

NARRATIVE: CASE EVENT DATE: 20230916
